FAERS Safety Report 8173912-3 (Version None)
Quarter: 2012Q1

REPORT INFORMATION
  Report Type: 
  Country: None (occurrence: None)
  Receive Date: 20120229
  Receipt Date: 20120216
  Transmission Date: 20120608
  Serious: Yes (Hospitalization, Other)
  Sender: FDA-Public Use
  Company Number: DE-ELI_LILLY_AND_COMPANY-DE201201004632

PATIENT
  Sex: Female

DRUGS (17)
  1. CARDIAC THERAPY [Concomitant]
  2. ALLOPURINOL [Concomitant]
     Dosage: 1 DF, BID
  3. LIMPTAR [Concomitant]
     Dosage: 1 DF, BID
  4. LOSARTAN POTASSIUM [Concomitant]
     Dosage: 2 DF, BID
  5. HTZ [Concomitant]
     Dosage: 1 DF, QD
  6. FUROSEMIDE [Concomitant]
     Dosage: 0.25 DF, EACH EVENING
  7. DIURETICS [Concomitant]
  8. LOSARTAN POTASSIUM [Concomitant]
     Dosage: 25 MG, UNK
  9. METOPROLOL TARTRATE AND HYDROCHLOROTHIAZIDE [Concomitant]
     Dosage: 0.5 DF, QD
  10. SPIRONOLACTONE [Concomitant]
     Dosage: UNK, UNKNOWN
     Route: 065
  11. FUROSEMIDE [Concomitant]
     Dosage: 125 MG, BID
  12. LEVOTHYROXINE SODIUM [Concomitant]
     Dosage: 50 UG, QD
  13. FORTEO [Suspect]
     Indication: OSTEOPOROSIS
     Dosage: UNK, QD
     Route: 058
     Dates: start: 20100722, end: 20120113
  14. CALCIUM D                          /00944201/ [Concomitant]
     Dosage: 1 DF, BID
  15. FLUTICASONE PROPIONATE/SALMETEROL [Concomitant]
     Dosage: 1 DF, BID
  16. MARCUMAR [Concomitant]
  17. FUROSEMIDE [Concomitant]
     Dosage: 0.5 DF, EACH MORNING

REACTIONS (7)
  - CARDIORENAL SYNDROME [None]
  - RENAL FAILURE [None]
  - THIRST [None]
  - DYSPNOEA EXERTIONAL [None]
  - URINARY RETENTION [None]
  - FATIGUE [None]
  - DYSPHONIA [None]
